FAERS Safety Report 25279640 (Version 1)
Quarter: 2025Q2

REPORT INFORMATION
  Report Type: Spontaneous
  Country: CA (occurrence: CA)
  Receive Date: 20250507
  Receipt Date: 20250507
  Transmission Date: 20250717
  Serious: Yes (Other)
  Sender: MYLAN
  Company Number: CA-MYLANLABS-2025M1038704

PATIENT
  Age: 52 Year
  Sex: Female

DRUGS (3)
  1. ATORVASTATIN [Suspect]
     Active Substance: ATORVASTATIN
     Indication: Lipids abnormal
     Dosage: 80 MILLIGRAM, QD (EVERY 1 DAYS)
  2. EZETIMIBE [Suspect]
     Active Substance: EZETIMIBE
     Indication: Lipids abnormal
     Dosage: 10 MILLIGRAM, QD (EVERY 1 DAYS)
  3. ROSUVASTATIN [Suspect]
     Active Substance: ROSUVASTATIN
     Indication: Lipids abnormal
     Dosage: 40 MILLIGRAM, QD (EVERY 1 DAYS)

REACTIONS (1)
  - Drug ineffective [Unknown]
